FAERS Safety Report 20127810 (Version 1)
Quarter: 2021Q4

REPORT INFORMATION
  Report Type: Spontaneous
  Country: JP (occurrence: JP)
  Receive Date: 20211129
  Receipt Date: 20211129
  Transmission Date: 20220303
  Serious: Yes (Hospitalization, Other)
  Sender: FDA-Public Use
  Company Number: JP-DSJP-DSJ-2021-138255

PATIENT
  Age: 76 Year
  Sex: Male

DRUGS (3)
  1. EDOXABAN TOSYLATE [Suspect]
     Active Substance: EDOXABAN TOSYLATE
     Indication: Atrial fibrillation
     Dosage: UNK
     Route: 048
  2. ASPIRIN [Concomitant]
     Active Substance: ASPIRIN
     Dosage: UNK
     Route: 048
  3. CEFAMEZIN [CEFAZOLIN SODIUM] [Concomitant]
     Indication: Spondylitis
     Dosage: UNK
     Route: 041

REACTIONS (3)
  - Spondylitis [Recovering/Resolving]
  - Embolism venous [Unknown]
  - Device dislocation [Recovering/Resolving]
